FAERS Safety Report 7750283-5 (Version None)
Quarter: 2011Q3

REPORT INFORMATION
  Report Type: 
  Country: None (occurrence: None)
  Receive Date: 20110914
  Receipt Date: 20110901
  Transmission Date: 20111222
  Serious: Yes (Hospitalization, Other)
  Sender: FDA-Public Use
  Company Number: US-ELI_LILLY_AND_COMPANY-US201008001853

PATIENT
  Sex: Female

DRUGS (13)
  1. FORTEO [Suspect]
     Indication: OSTEOPOROSIS
     Dosage: 20 UG, QD
  2. VITAMIN TAB [Concomitant]
     Dosage: UNK, UNK
  3. METOPROLOL [Concomitant]
     Dosage: UNK, UNK
  4. PRAVACHOL [Concomitant]
  5. FORTEO [Suspect]
     Dosage: 20 UG, QD
  6. FISH OIL [Concomitant]
     Dosage: UNK, UNK
  7. NEXIUM [Concomitant]
     Dosage: UNK, UNK
  8. ASPIRIN [Concomitant]
     Dosage: 81 MG, UNK
  9. LOTREL [Concomitant]
     Dosage: UNK, UNK
  10. KLONOPIN [Concomitant]
     Dosage: UNK, UNK
  11. SYNTHROID [Concomitant]
     Dosage: UNK, UNK
  12. PLAVIX [Concomitant]
     Dosage: UNK, UNK
  13. MSM [Concomitant]
     Dosage: UNK, UNK

REACTIONS (8)
  - CHOLECYSTECTOMY [None]
  - CONTUSION [None]
  - MALAISE [None]
  - HEPATIC ENZYME INCREASED [None]
  - CHEST PAIN [None]
  - FEELING ABNORMAL [None]
  - PAIN IN EXTREMITY [None]
  - DRUG DOSE OMISSION [None]
